FAERS Safety Report 14831799 (Version 1)
Quarter: 2018Q2

REPORT INFORMATION
  Report Type: Spontaneous
  Country: US (occurrence: US)
  Receive Date: 20180410
  Receipt Date: 20180410
  Transmission Date: 20180711
  Serious: No
  Sender: FDA-Public Use
  Company Number: None

PATIENT
  Age: 40 Year
  Sex: Female
  Weight: 90 kg

DRUGS (3)
  1. BUPROPION XL 300 MG [Suspect]
     Active Substance: BUPROPION
     Indication: PERSISTENT DEPRESSIVE DISORDER
     Dosage: ?          QUANTITY:1 TABLET(S);?
     Route: 048
  2. LEVOTHYROXINE. [Concomitant]
     Active Substance: LEVOTHYROXINE
  3. FLUOXETINE [Concomitant]
     Active Substance: FLUOXETINE HYDROCHLORIDE

REACTIONS (3)
  - Anxiety [None]
  - Depression [None]
  - Product substitution issue [None]
